FAERS Safety Report 17640231 (Version 7)
Quarter: 2021Q3

REPORT INFORMATION
  Report Type: Report from Study
  Country: None (occurrence: JP)
  Receive Date: 20200408
  Receipt Date: 20210908
  Transmission Date: 20211014
  Serious: Yes (Hospitalization)
  Sender: FDA-Public Use
  Company Number: JP-ABBVIE-20K-087-3328981-00

PATIENT
  Age: 71 Year
  Sex: Male

DRUGS (2)
  1. DUODOPA [Suspect]
     Active Substance: CARBIDOPA\LEVODOPA
  2. DUODOPA [Suspect]
     Active Substance: CARBIDOPA\LEVODOPA
     Indication: PARKINSON^S DISEASE
     Dosage: 20 MG/ML 5 MG/ML
     Route: 050
     Dates: start: 20200214

REACTIONS (15)
  - Product storage error [Unknown]
  - Head injury [Unknown]
  - Drug ineffective [Unknown]
  - Visual impairment [Unknown]
  - Device issue [Unknown]
  - Fall [Unknown]
  - Malaise [Unknown]
  - Dyskinesia [Unknown]
  - Device breakage [Unknown]
  - Wrong technique in device usage process [Unknown]
  - Tremor [Unknown]
  - Medical device pain [Unknown]
  - Asthenia [Unknown]
  - Spinal compression fracture [Not Recovered/Not Resolved]
  - Dysphonia [Unknown]

NARRATIVE: CASE EVENT DATE: 2020
